FAERS Safety Report 17599833 (Version 1)
Quarter: 2020Q1

REPORT INFORMATION
  Report Type: Spontaneous
  Country: JP (occurrence: JP)
  Receive Date: 20200330
  Receipt Date: 20200330
  Transmission Date: 20200409
  Serious: Yes (Hospitalization)
  Sender: FDA-Public Use
  Company Number: NVSC2020JP086152

PATIENT
  Age: 79 Year
  Sex: Male

DRUGS (1)
  1. STARSIS [Suspect]
     Active Substance: NATEGLINIDE
     Indication: TYPE 2 DIABETES MELLITUS
     Dosage: 30 MG, BID (IN THE MORNING AND AT NOON)
     Route: 048
     Dates: end: 20200320

REACTIONS (2)
  - Prescribed underdose [Unknown]
  - Cardiac failure [Unknown]
